FAERS Safety Report 9247666 (Version 1)
Quarter: 2013Q1

REPORT INFORMATION
  Report Type: Spontaneous
  Country: US (occurrence: None)
  Receive Date: 20130305
  Receipt Date: 20130305
  Transmission Date: 20140127
  Serious: Yes (Other)
  Sender: FDA-Public Use
  Company Number: 163-21880-12093374

PATIENT
  Age: 72 Year
  Sex: Male

DRUGS (9)
  1. REVLIMID [Suspect]
     Indication: PLASMA CELL MYELOMA
     Dosage: 21 IN 21 D
     Route: 048
     Dates: start: 20120905
  2. GEMFIBROZIL (GEMFIBROZIL) [Concomitant]
  3. ACYCLOVIR (ACICLOVIR) (ACICLOVIR) [Concomitant]
  4. IBUPROFEN (IBUPROFEN) [Concomitant]
  5. PRAMIPEXOLE (PRAMIPEXOLE) [Concomitant]
  6. L-THYROXINE (LEVOTHYROXINE SODIUM) [Concomitant]
  7. ONDANSETRON (ONDANSETRON) [Concomitant]
  8. OMEPRAZOLE (OMEPRAZOLE) [Concomitant]
  9. GABAPENTIN (GABAPENTIN) [Concomitant]

REACTIONS (3)
  - Haemoglobin decreased [None]
  - Fatigue [None]
  - Platelet count decreased [None]
